FAERS Safety Report 4959065-0 (Version None)
Quarter: 2006Q1

REPORT INFORMATION
  Report Type: 
  Country: None (occurrence: None)
  Receive Date: 20060328
  Receipt Date: 20060313
  Transmission Date: 20060701
  Serious: Yes (Life-Threatening, Hospitalization)
  Sender: FDA-Public Use
  Company Number: 2006SP001230

PATIENT
  Age: 53 Year
  Sex: Female

DRUGS (27)
  1. LUNESTA [Suspect]
     Indication: INSOMNIA
     Dosage: SEE IMAGE
     Route: 048
     Dates: start: 20060312, end: 20060312
  2. WELLBUTRIN [Concomitant]
  3. PROZAC [Concomitant]
  4. TRAZODONE [Concomitant]
  5. ESTROGENS [Concomitant]
  6. PROGESTERONE [Concomitant]
  7. TESTOSTERONE [Concomitant]
  8. SOMA [Concomitant]
  9. COMMIT [Concomitant]
  10. IBUPROFEN [Concomitant]
  11. ASPIRIN [Concomitant]
  12. DECONGESTANT [Concomitant]
  13. PEPPERMINT OIL [Concomitant]
  14. MULTIVITAMIN [Concomitant]
  15. ASCORBIC ACID [Concomitant]
  16. OCUVITE [Concomitant]
  17. PSYLLIUM [Concomitant]
  18. PECTIN [Concomitant]
  19. VITAMIN E [Concomitant]
  20. OMEGA 3 [Concomitant]
  21. VITAMIN B COMPLEX CAP [Concomitant]
  22. PROBIOTICA [Concomitant]
  23. MULTIVITAMIN AND MINERAL SUPPLEMENT [Concomitant]
  24. MELATONIN [Concomitant]
  25. FOLIC ACID [Concomitant]
  26. VITAMIN B-12 [Concomitant]
  27. GLUCOSAMINE [Concomitant]

REACTIONS (6)
  - ALCOHOL USE [None]
  - ASPARTATE AMINOTRANSFERASE INCREASED [None]
  - DEPRESSED LEVEL OF CONSCIOUSNESS [None]
  - INTENTIONAL OVERDOSE [None]
  - INTENTIONAL SELF-INJURY [None]
  - TREATMENT NONCOMPLIANCE [None]
